FAERS Safety Report 23710807 (Version 4)
Quarter: 2024Q3

REPORT INFORMATION
  Report Type: Spontaneous
  Country: FR (occurrence: FR)
  Receive Date: 20240405
  Receipt Date: 20240830
  Transmission Date: 20241017
  Serious: Yes (Death, Hospitalization, Other)
  Sender: SANOFI AVENTIS
  Company Number: None

PATIENT
  Age: 67 Year
  Sex: Male
  Weight: 74 kg

DRUGS (12)
  1. VERAPAMIL HYDROCHLORIDE [Suspect]
     Active Substance: VERAPAMIL HYDROCHLORIDE
     Indication: Hypertension
     Dosage: 240 MG
     Route: 065
  2. AMOXICILLIN [Suspect]
     Active Substance: AMOXICILLIN
     Indication: Helicobacter infection
     Dosage: 2 G, QD
     Route: 048
     Dates: start: 20100424, end: 20100501
  3. SMECTA [Suspect]
     Active Substance: MONTMORILLONITE
     Indication: Product used for unknown indication
     Dosage: UNK
     Route: 065
  4. CLARITHROMYCIN [Suspect]
     Active Substance: CLARITHROMYCIN
     Indication: Helicobacter infection
     Dosage: 1 G, QD (1 GRAM DAILY)
     Route: 048
     Dates: start: 20100424, end: 20100501
  5. ESOMEPRAZOLE SODIUM [Suspect]
     Active Substance: ESOMEPRAZOLE SODIUM
     Indication: Helicobacter infection
     Dosage: 40 MG, QD (20 MG, BID)
     Route: 048
  6. SIMVASTATIN [Suspect]
     Active Substance: SIMVASTATIN
     Indication: Product used for unknown indication
     Dosage: UNK
     Route: 065
  7. NORFLOXACIN [Suspect]
     Active Substance: NORFLOXACIN
     Indication: Product used for unknown indication
     Dosage: UNK
     Route: 065
  8. COLCHICINE [Suspect]
     Active Substance: COLCHICINE
     Indication: Hyperuricaemia
     Dosage: 3 MG, QD (3 MG DAILY)
     Route: 048
     Dates: start: 201002, end: 20100504
  9. COLCHICINE [Suspect]
     Active Substance: COLCHICINE
     Indication: Rheumatoid arthritis
     Dosage: 29 APR2010 2 TABLET/DAY THEN 1TABLET/DAY
     Route: 048
     Dates: start: 20100423, end: 20100504
  10. IRBESARTAN [Suspect]
     Active Substance: IRBESARTAN
     Indication: Hypertension
     Dosage: 150 MG, QD
     Route: 048
     Dates: start: 201002
  11. ACETAMINOPHEN [Suspect]
     Active Substance: ACETAMINOPHEN
     Indication: Product used for unknown indication
     Dosage: UNK
     Route: 065
  12. CLARITHROMYCIN [Suspect]
     Active Substance: CLARITHROMYCIN
     Indication: Helicobacter infection
     Dosage: 1 GRAM DAILY
     Route: 048
     Dates: start: 20100424, end: 20100501

REACTIONS (5)
  - Aspiration [Fatal]
  - Neutropenia [Fatal]
  - Shock [Fatal]
  - Cardio-respiratory arrest [Fatal]
  - Thrombocytopenia [Fatal]

NARRATIVE: CASE EVENT DATE: 20100503
